FAERS Safety Report 9336357 (Version 2)
Quarter: 2014Q1

REPORT INFORMATION
  Report Type: Spontaneous
  Country: CA (occurrence: CA)
  Receive Date: 20130607
  Receipt Date: 20140115
  Transmission Date: 20141002
  Serious: Yes (Hospitalization, Other)
  Sender: FDA-Public Use
  Company Number: CA-AMGEN-CANSP2013040028

PATIENT
  Age: 60 Year
  Sex: Female
  Weight: 75 kg

DRUGS (2)
  1. PROLIA [Suspect]
     Indication: OSTEOPOROSIS POSTMENOPAUSAL
     Dosage: 60 MG, UNK
     Route: 065
     Dates: start: 20110613, end: 20130702
  2. CALCIUM [Concomitant]

REACTIONS (7)
  - Muscle disorder [Unknown]
  - Pulmonary mass [Unknown]
  - Localised infection [Not Recovered/Not Resolved]
  - Pulmonary haemorrhage [Unknown]
  - Phlebitis [Unknown]
  - Bone marrow disorder [Unknown]
  - Impaired healing [Not Recovered/Not Resolved]
